FAERS Safety Report 24637246 (Version 4)
Quarter: 2025Q1

REPORT INFORMATION
  Report Type: Spontaneous
  Country: ES (occurrence: ES)
  Receive Date: 20241119
  Receipt Date: 20250214
  Transmission Date: 20250408
  Serious: Yes (Hospitalization, Other)
  Sender: PFIZER
  Company Number: ES-HIKMA PHARMACEUTICALS-ES-H14001-24-10250

PATIENT
  Age: 75 Year
  Sex: Male
  Weight: 113.6 kg

DRUGS (26)
  1. CARBOPLATIN [Suspect]
     Active Substance: CARBOPLATIN
     Indication: Non-small cell lung cancer
     Dosage: 629 MG, EVERY 3 WEEKS
     Route: 042
     Dates: start: 20241002, end: 20241002
  2. CARBOPLATIN [Suspect]
     Active Substance: CARBOPLATIN
     Dosage: 629 MG, EVERY 3 WEEKS
     Route: 042
     Dates: start: 20241204, end: 20241204
  3. CARBOPLATIN [Suspect]
     Active Substance: CARBOPLATIN
     Dosage: 629 MG, EVERY 3 WEEKS
     Route: 042
     Dates: start: 20241224, end: 20241224
  4. PEMETREXED [Suspect]
     Active Substance: PEMETREXED
     Indication: Non-small cell lung cancer
     Dosage: 500 MG/M2, EVERY 3 WEEKS
     Route: 042
     Dates: start: 20241002, end: 20241002
  5. PEMETREXED [Suspect]
     Active Substance: PEMETREXED
     Route: 042
     Dates: start: 20241204, end: 20241204
  6. PEMETREXED [Suspect]
     Active Substance: PEMETREXED
     Route: 042
     Dates: start: 20241224, end: 20241224
  7. VUDALIMAB [Suspect]
     Active Substance: VUDALIMAB
     Indication: Non-small cell lung cancer
     Dosage: 500 MG, EVERY 3 WEEKS
     Route: 042
     Dates: start: 20241002, end: 20241002
  8. VUDALIMAB [Suspect]
     Active Substance: VUDALIMAB
     Route: 042
     Dates: start: 20241106
  9. VUDALIMAB [Suspect]
     Active Substance: VUDALIMAB
     Route: 042
     Dates: start: 20241106
  10. VUDALIMAB [Suspect]
     Active Substance: VUDALIMAB
     Dates: start: 20241204, end: 20241204
  11. VUDALIMAB [Suspect]
     Active Substance: VUDALIMAB
     Dosage: 500 MG, EVERY 3 WEEKS
     Dates: start: 20241224, end: 20241224
  12. HYDROCHLOROTHIAZIDE [Concomitant]
     Active Substance: HYDROCHLOROTHIAZIDE
     Route: 065
     Dates: start: 2004
  13. OLMESARTAN [Concomitant]
     Active Substance: OLMESARTAN
     Route: 065
     Dates: start: 2004
  14. AMLODIPINE [Concomitant]
     Active Substance: AMLODIPINE BESYLATE
     Indication: Hypertension
     Route: 065
     Dates: start: 2004
  15. METFORMIN [Concomitant]
     Active Substance: METFORMIN HYDROCHLORIDE
     Indication: Type 2 diabetes mellitus
     Route: 065
     Dates: start: 2004
  16. BISOPROLOL [Concomitant]
     Active Substance: BISOPROLOL
     Indication: Myocardial ischaemia
     Route: 065
     Dates: start: 2009
  17. OMEPRAZOLE [Concomitant]
     Active Substance: OMEPRAZOLE
     Indication: Prophylaxis
  18. FEBUXOSTAT [Concomitant]
     Active Substance: FEBUXOSTAT
     Indication: Osteitis deformans
     Route: 065
  19. ASPIRIN [Concomitant]
     Active Substance: ASPIRIN
     Indication: Myocardial ischaemia
     Dates: start: 2009
  20. DULAGLUTIDE [Concomitant]
     Active Substance: DULAGLUTIDE
     Indication: Type 2 diabetes mellitus
     Dates: start: 2004
  21. ATORVASTATIN [Concomitant]
     Active Substance: ATORVASTATIN
     Indication: Dyslipidaemia
     Dates: start: 2004
  22. DEXAMETHASONE [Concomitant]
     Active Substance: DEXAMETHASONE
     Dates: start: 20241002, end: 20241002
  23. AKYNZEO (NETUPITANT\PALONOSETRON HYDROCHLORIDE) [Concomitant]
     Active Substance: NETUPITANT\PALONOSETRON HYDROCHLORIDE
     Dates: start: 20241002, end: 20241002
  24. FOLIC ACID [Concomitant]
     Active Substance: FOLIC ACID
     Indication: Prophylaxis
     Dates: start: 20241001
  25. VITAMIN B12 [Concomitant]
     Active Substance: CYANOCOBALAMIN
     Indication: Prophylaxis
     Dates: start: 20241001
  26. PIPERACILLIN [Concomitant]
     Active Substance: PIPERACILLIN
     Indication: Pyrexia
     Dates: start: 20241018, end: 20241025

REACTIONS (12)
  - Pyrexia [Recovered/Resolved]
  - Rash [Unknown]
  - Anaemia [Unknown]
  - C-reactive protein increased [Unknown]
  - Blood creatinine increased [Unknown]
  - Platelet count decreased [Unknown]
  - Ultrasound abdomen abnormal [Unknown]
  - Chest X-ray abnormal [Unknown]
  - Influenza A virus test positive [Unknown]
  - Angina pectoris [Unknown]
  - Dermatitis [Unknown]
  - Off label use [Unknown]

NARRATIVE: CASE EVENT DATE: 20241002
